FAERS Safety Report 6387678-0 (Version None)
Quarter: 2009Q4

REPORT INFORMATION
  Report Type: 
  Country: None (occurrence: None)
  Receive Date: 20091005
  Receipt Date: 20090925
  Transmission Date: 20100525
  Serious: Yes (Hospitalization)
  Sender: FDA-Public Use
  Company Number: PHHO2009IT10632

PATIENT
  Sex: Male
  Weight: 76.5 kg

DRUGS (6)
  1. RAD 666 RAD+TAB+PTR [Suspect]
     Indication: RENAL TRANSPLANT
     Dosage: 1.5 MG, UNK
     Route: 048
     Dates: start: 20090818, end: 20090828
  2. RAD 666 RAD+TAB+PTR [Suspect]
     Dosage: 1.5 MG, UNK
     Route: 048
     Dates: start: 20090904, end: 20090911
  3. CYCLOSPORINE [Suspect]
     Indication: RENAL TRANSPLANT
     Dosage: 175 MG, UNK
     Route: 048
     Dates: start: 20090818, end: 20090911
  4. METHYLPREDNISOLONE [Suspect]
     Indication: RENAL TRANSPLANT
     Dosage: 16 MG, UNK
     Route: 048
     Dates: start: 20090818, end: 20090911
  5. MYCOPHENOLATE MOFETIL [Concomitant]
     Dosage: UNK
     Dates: start: 20090828, end: 20090904
  6. MYCOPHENOLATE MOFETIL [Concomitant]
     Dosage: UNK
     Dates: start: 20090912

REACTIONS (6)
  - BLOOD CREATININE INCREASED [None]
  - COMPLICATIONS OF TRANSPLANTED KIDNEY [None]
  - KIDNEY TRANSPLANT REJECTION [None]
  - PYREXIA [None]
  - RENAL TUBULAR NECROSIS [None]
  - WOUND DEHISCENCE [None]
